FAERS Safety Report 21031349 (Version 2)
Quarter: 2022Q3

REPORT INFORMATION
  Report Type: Spontaneous
  Country: JP (occurrence: JP)
  Receive Date: 20220701
  Receipt Date: 20220714
  Transmission Date: 20221027
  Serious: Yes (Death)
  Sender: FDA-Public Use
  Company Number: JP-NOVOPROD-932366

PATIENT
  Age: 80 Year
  Sex: Female

DRUGS (6)
  1. NOVOSEVEN [Suspect]
     Active Substance: COAGULATION FACTOR VIIA RECOMBINANT HUMAN
     Indication: Acquired haemophilia
     Dosage: UNK
     Route: 042
     Dates: end: 20220619
  2. BYCLOT [Concomitant]
     Active Substance: COAGULATION FACTOR VII HUMAN\COAGULATION FACTOR X HUMAN
     Indication: Acquired haemophilia
     Dosage: UNK
     Route: 042
  3. PREDNISOLONE [Concomitant]
     Active Substance: PREDNISOLONE
     Indication: Immunosuppression
     Dosage: 1 MG, QD
     Route: 048
  4. CYCLOPHOSPHAMIDE [Concomitant]
     Active Substance: CYCLOPHOSPHAMIDE
     Indication: Immunosuppression
     Dosage: UNK
     Route: 042
  5. RITUXIMAB [Concomitant]
     Active Substance: RITUXIMAB
     Indication: Immunosuppression
     Dosage: UNK
     Route: 042
  6. CYCLOSPORINE [Concomitant]
     Active Substance: CYCLOSPORINE
     Indication: Immunosuppression
     Dosage: UNK

REACTIONS (2)
  - Pneumonia [Fatal]
  - Sepsis [Fatal]
